FAERS Safety Report 7291643-9 (Version None)
Quarter: 2011Q1

REPORT INFORMATION
  Report Type: 
  Country: None (occurrence: None)
  Receive Date: 20110214
  Receipt Date: 20100518
  Transmission Date: 20110831
  Serious: Yes (Hospitalization)
  Sender: FDA-Public Use
  Company Number: US-EISAI INC-E2080-00297-SPO-US

PATIENT
  Age: 14 Year
  Sex: Female
  Weight: 43 kg

DRUGS (6)
  1. BANZEL [Suspect]
     Route: 048
     Dates: start: 20080101, end: 20080101
  2. TOPIRAMATE [Concomitant]
  3. PREGABALIN [Concomitant]
  4. BANZEL [Suspect]
     Route: 048
     Dates: start: 20090201, end: 20100120
  5. BANZEL [Suspect]
     Route: 048
     Dates: start: 20080101, end: 20090201
  6. GENERAL ANESTHESIA [Suspect]
     Indication: VAGAL NERVE STIMULATOR IMPLANTATION
     Dosage: UNKNOWN
     Dates: start: 20090301, end: 20090301

REACTIONS (6)
  - ABDOMINAL PAIN UPPER [None]
  - NAUSEA [None]
  - VOMITING [None]
  - CONSTIPATION [None]
  - WEIGHT DECREASED [None]
  - OROPHARYNGEAL PAIN [None]
